FAERS Safety Report 4876059-4 (Version None)
Quarter: 2005Q4

REPORT INFORMATION
  Report Type: 
  Country: None (occurrence: None)
  Receive Date: 20051206
  Receipt Date: 20051021
  Transmission Date: 20060501
  Serious: No
  Sender: FDA-Public Use
  Company Number: USA0510111698

PATIENT
  Sex: Female

DRUGS (2)
  1. CYMBALTA [Suspect]
     Dosage: 60 MG
  2. LEXAPRO (ESCITALOPRAM OXALATE0 [Concomitant]

REACTIONS (5)
  - CRYING [None]
  - DIZZINESS [None]
  - FEELING ABNORMAL [None]
  - PALPITATIONS [None]
  - VISUAL DISTURBANCE [None]
